FAERS Safety Report 11065085 (Version 3)
Quarter: 2015Q3

REPORT INFORMATION
  Report Type: Spontaneous
  Country: US (occurrence: US)
  Receive Date: 20150424
  Receipt Date: 20150812
  Transmission Date: 20151125
  Serious: Yes (Other)
  Sender: FDA-Public Use
  Company Number: US-JNJFOC-20150400590

PATIENT
  Sex: Female
  Weight: 71.67 kg

DRUGS (1)
  1. TOPAMAX [Suspect]
     Active Substance: TOPIRAMATE
     Indication: SEIZURE
     Route: 048
     Dates: start: 2004

REACTIONS (3)
  - Blood glucose decreased [Unknown]
  - Product packaging quantity issue [Unknown]
  - Glaucoma [Unknown]

NARRATIVE: CASE EVENT DATE: 2005
